FAERS Safety Report 5255682-1 (Version None)
Quarter: 2007Q1

REPORT INFORMATION
  Report Type: 
  Country: None (occurrence: None)
  Receive Date: 20070305
  Receipt Date: 20070223
  Transmission Date: 20070707
  Serious: Yes (Hospitalization)
  Sender: FDA-Public Use
  Company Number: FR-PFIZER INC-2007003632

PATIENT
  Age: 76 Year
  Sex: Male

DRUGS (15)
  1. ALDACTONE [Suspect]
     Indication: CARDIOMYOPATHY
     Route: 048
  2. ALDACTONE [Interacting]
     Indication: HYPERTENSION
  3. KENZEN [Interacting]
     Indication: CARDIOMYOPATHY
     Dosage: TEXT:1 DF-FREQ:DAILY
     Route: 048
     Dates: end: 20060802
  4. KENZEN [Interacting]
     Indication: HYPERTENSION
  5. LASIX [Interacting]
     Indication: CARDIOMYOPATHY
     Route: 048
  6. LASIX [Interacting]
     Indication: HYPERTENSION
  7. DIFFU K [Interacting]
     Indication: HYPOKALAEMIA
     Dosage: TEXT:1 DF-FREQ:DAILY
     Route: 048
  8. HYPERIUM [Concomitant]
     Indication: CARDIOMYOPATHY
     Dosage: DAILY DOSE:1MG
     Route: 048
  9. HYPERIUM [Concomitant]
     Indication: ESSENTIAL HYPERTENSION
  10. ALLOPURINOL [Concomitant]
     Dosage: TEXT:1 DF
     Route: 048
  11. KARDEGIC [Concomitant]
     Dosage: TEXT:1 DF-FREQ:DAILY
     Route: 048
  12. STABLON [Concomitant]
     Dosage: TEXT:3 DF-FREQ:DAILY
     Route: 048
  13. ZOXAN LP [Concomitant]
     Indication: BENIGN NEOPLASM OF PROSTATE
     Dosage: TEXT:1 DF-FREQ:DAILY
     Route: 048
     Dates: end: 20060802
  14. MOPRAL [Concomitant]
     Dosage: TEXT:1 DF-FREQ:DAILY
     Route: 048
  15. RILMENIDINE DIHYDROGEN PHOSPHATE [Concomitant]
     Route: 048

REACTIONS (2)
  - DRUG INTERACTION [None]
  - HYPERKALAEMIA [None]
